FAERS Safety Report 8257210-5 (Version None)
Quarter: 2012Q1

REPORT INFORMATION
  Report Type: 
  Country: None (occurrence: None)
  Receive Date: 20120330
  Receipt Date: 20120320
  Transmission Date: 20120608
  Serious: Yes (Life-Threatening, Hospitalization)
  Sender: FDA-Public Use
  Company Number: DSA_55662_2012

PATIENT
  Age: 81 Year
  Sex: Male

DRUGS (1)
  1. ENALAPRIL MALEATE [Suspect]
     Indication: HYPERTENSION
     Dosage: (FREQUENCY UNSPECIFIED ORAL)
     Route: 048
     Dates: start: 20060622, end: 20091101

REACTIONS (7)
  - DYSPNOEA [None]
  - RENAL FAILURE CHRONIC [None]
  - CARDIAC FAILURE [None]
  - ANAEMIA [None]
  - HYPERKALAEMIA [None]
  - BLOOD PRESSURE INADEQUATELY CONTROLLED [None]
  - URINARY TRACT INFECTION [None]
